FAERS Safety Report 7703849-2 (Version None)
Quarter: 2011Q3

REPORT INFORMATION
  Report Type: 
  Country: None (occurrence: None)
  Receive Date: 20110823
  Receipt Date: 20110816
  Transmission Date: 20111222
  Serious: Yes (Other)
  Sender: FDA-Public Use
  Company Number: US-ROCHE-797079

PATIENT
  Sex: Female

DRUGS (2)
  1. ISOTRETINOIN [Suspect]
     Route: 065
     Dates: start: 20080926, end: 20081026
  2. ACCUTANE [Suspect]
     Route: 065
     Dates: start: 20040416, end: 20040516

REACTIONS (1)
  - INJURY [None]
